FAERS Safety Report 5139240-5 (Version None)
Quarter: 2006Q4

REPORT INFORMATION
  Report Type: 
  Country: None (occurrence: None)
  Receive Date: 20061026
  Receipt Date: 20061026
  Transmission Date: 20070319
  Serious: Yes (Other)
  Sender: FDA-Public Use
  Company Number: None

PATIENT
  Age: 65 Year
  Sex: Male
  Weight: 83.9154 kg

DRUGS (1)
  1. LISINOPRIL [Suspect]
     Indication: HYPERTENSION
     Dosage: 1 TABLET DAILY PO
     Route: 048
     Dates: start: 20060215, end: 20061016

REACTIONS (14)
  - ALOPECIA [None]
  - ASTHENIA [None]
  - COUGH [None]
  - DIARRHOEA [None]
  - DRY SKIN [None]
  - DYSPNOEA [None]
  - FATIGUE [None]
  - OEDEMA PERIPHERAL [None]
  - PRURITUS [None]
  - RASH GENERALISED [None]
  - RHINORRHOEA [None]
  - SKIN DEPIGMENTATION [None]
  - SKIN EXFOLIATION [None]
  - SNEEZING [None]
